FAERS Safety Report 25145558 (Version 1)
Quarter: 2025Q2

REPORT INFORMATION
  Report Type: Spontaneous
  Country: CN (occurrence: CN)
  Receive Date: 20250401
  Receipt Date: 20250401
  Transmission Date: 20250716
  Serious: Yes (Other)
  Sender: PFIZER
  Company Number: CN-PFIZER INC-PV202500037136

PATIENT
  Age: 4 Year
  Sex: Male

DRUGS (3)
  1. XYNTHA [Suspect]
     Active Substance: MOROCTOCOG ALFA
     Indication: Factor VIII deficiency
     Dosage: 500 IU, QD
     Route: 042
     Dates: start: 20240725
  2. XYNTHA [Suspect]
     Active Substance: MOROCTOCOG ALFA
     Dosage: 1000 IU, QD
     Route: 040
     Dates: start: 20250109
  3. XYNTHA [Suspect]
     Active Substance: MOROCTOCOG ALFA
     Dosage: 2000 IU, QD
     Route: 040
     Dates: start: 20250219

REACTIONS (7)
  - Gingival bleeding [Unknown]
  - Joint dislocation [Unknown]
  - Joint swelling [Unknown]
  - Pain in extremity [Unknown]
  - Peripheral swelling [Unknown]
  - Cyanosis [Unknown]
  - Arthralgia [Unknown]

NARRATIVE: CASE EVENT DATE: 20250325
